FAERS Safety Report 5796363-5 (Version None)
Quarter: 2008Q2

REPORT INFORMATION
  Report Type: 
  Country: None (occurrence: None)
  Receive Date: 20080630
  Receipt Date: 20080630
  Transmission Date: 20081010
  Serious: Yes (Disabling)
  Sender: FDA-Public Use
  Company Number: None

PATIENT
  Age: 55 Year
  Sex: Female
  Weight: 65.7716 kg

DRUGS (1)
  1. ZICAM COLD REMEDY REGULAR ZICAM LLC MATRIXX INITIATIVES, INC. [Suspect]
     Indication: NASAL CONGESTION
     Dosage: 1 SPRAY UP EACH NOSTILE ONCE EVERY 6 HRS. NASAL
     Route: 045
     Dates: start: 20080429, end: 20080504

REACTIONS (4)
  - AGEUSIA [None]
  - ANOSMIA [None]
  - DRUG EFFECT DECREASED [None]
  - NASAL DISCOMFORT [None]
